FAERS Safety Report 7720441-4 (Version None)
Quarter: 2011Q3

REPORT INFORMATION
  Report Type: 
  Country: None (occurrence: None)
  Receive Date: 20110825
  Receipt Date: 20110810
  Transmission Date: 20111222
  Serious: Yes (Other)
  Sender: FDA-Public Use
  Company Number: US-DEXPHARM-20111207

PATIENT
  Sex: Female

DRUGS (1)
  1. OMEPRAZOLE [Suspect]
     Indication: GASTROOESOPHAGEAL REFLUX DISEASE
     Dosage: 20-80 MG DAILY, ORAL
     Route: 048
     Dates: start: 20100801

REACTIONS (14)
  - HYPOAESTHESIA [None]
  - PAIN [None]
  - LIPOATROPHY [None]
  - SPIDER VEIN [None]
  - THYROID FUNCTION TEST ABNORMAL [None]
  - OEDEMA PERIPHERAL [None]
  - ABASIA [None]
  - BURNING SENSATION [None]
  - JOINT SWELLING [None]
  - SENSORY DISTURBANCE [None]
  - PARAESTHESIA [None]
  - BONE PAIN [None]
  - MUSCLE SPASMS [None]
  - PERIPHERAL COLDNESS [None]
